FAERS Safety Report 19391638 (Version 1)
Quarter: 2021Q2

REPORT INFORMATION
  Report Type: Spontaneous
  Country: US (occurrence: US)
  Receive Date: 20210609
  Receipt Date: 20210609
  Transmission Date: 20210717
  Serious: No
  Sender: FDA-Public Use
  Company Number: US-SA-2021SA190343

PATIENT
  Age: 35 Year
  Sex: Female

DRUGS (8)
  1. DEXTROAMPHETAMINE [DEXAMFETAMINE] [Concomitant]
     Active Substance: DEXTROAMPHETAMINE
  2. DUPIXENT [Suspect]
     Active Substance: DUPILUMAB
     Indication: DERMATITIS ATOPIC
     Dosage: LOADING DOSE
     Route: 058
     Dates: start: 202103, end: 202103
  3. PREDNISONE. [Concomitant]
     Active Substance: PREDNISONE
  4. DUPIXENT [Suspect]
     Active Substance: DUPILUMAB
     Dosage: THIRD DOSE
     Dates: start: 20210603
  5. TOBRAMYCIN. [Concomitant]
     Active Substance: TOBRAMYCIN
  6. DUPIXENT [Suspect]
     Active Substance: DUPILUMAB
     Dosage: 300 MG, QOW
     Route: 058
     Dates: start: 202105
  7. MODERNA COVID?19 VACCINE [Concomitant]
     Active Substance: CX-024414
     Indication: COVID-19 IMMUNISATION
  8. DESONIDE. [Concomitant]
     Active Substance: DESONIDE

REACTIONS (9)
  - Eyelids pruritus [Unknown]
  - Eyelid skin dryness [Not Recovered/Not Resolved]
  - Dry eye [Recovered/Resolved]
  - Eye pruritus [Recovered/Resolved]
  - Ocular hyperaemia [Recovered/Resolved]
  - Dry skin [Unknown]
  - Erythema of eyelid [Unknown]
  - Skin fissures [Unknown]
  - Eczema [Unknown]

NARRATIVE: CASE EVENT DATE: 2021
